FAERS Safety Report 18991504 (Version 1)
Quarter: 2021Q1

REPORT INFORMATION
  Report Type: Spontaneous
  Country: DE (occurrence: DE)
  Receive Date: 20210310
  Receipt Date: 20210310
  Transmission Date: 20210420
  Serious: Yes (Hospitalization, Congenital Anomaly, Other)
  Sender: FDA-Public Use
  Company Number: DE-TEVA-2021-DE-1887269

PATIENT
  Age: 1 Day
  Sex: Male
  Weight: 3.68 kg

DRUGS (3)
  1. DOLANTIN [Concomitant]
     Active Substance: MEPERIDINE
     Indication: LABOUR PAIN
     Route: 064
     Dates: start: 20200907, end: 20200907
  2. BUSCOPAN [Concomitant]
     Active Substance: BUTYLSCOPOLAMINE BROMIDE
     Indication: LABOUR PAIN
     Route: 064
     Dates: start: 20200907, end: 20200907
  3. COPAXONE [Suspect]
     Active Substance: GLATIRAMER ACETATE
     Indication: MULTIPLE SCLEROSIS
     Dosage: 120 [MG/WK ] 3 SEPARATED DOSES , UNIT DOSE : 120 MG
     Route: 064
     Dates: start: 20191128, end: 20200907

REACTIONS (4)
  - Patent ductus arteriosus [Recovered/Resolved]
  - Hypoglycaemia neonatal [Recovered/Resolved]
  - Foetal exposure during pregnancy [Unknown]
  - Atrial septal defect [Not Recovered/Not Resolved]

NARRATIVE: CASE EVENT DATE: 20200907
